FAERS Safety Report 6035298-X (Version None)
Quarter: 2009Q1

REPORT INFORMATION
  Report Type: 
  Country: None (occurrence: None)
  Receive Date: 20090109
  Receipt Date: 20081225
  Transmission Date: 20090719
  Serious: Yes (Other)
  Sender: FDA-Public Use
  Company Number: CHPA2008US23632

PATIENT
  Age: 28 Year
  Sex: Male

DRUGS (2)
  1. THERAFLU SEVERE COLD  (PHENIRAMINE MALEAT, PHENYLEPHRINE HYDROCHLORIDE [Suspect]
     Indication: NASOPHARYNGITIS
     Dosage: 1 DF, TID, ORAL
     Route: 048
     Dates: start: 20081222, end: 20081224
  2. IBUPROFEN [Suspect]
     Indication: NASOPHARYNGITIS
     Dosage: PRN, ORAL
     Route: 048
     Dates: start: 20081222, end: 20081224

REACTIONS (4)
  - PRURITUS [None]
  - PYREXIA [None]
  - RASH GENERALISED [None]
  - URTICARIA [None]
